FAERS Safety Report 7096979-2 (Version None)
Quarter: 2010Q4

REPORT INFORMATION
  Report Type: 
  Country: None (occurrence: None)
  Receive Date: 20101111
  Receipt Date: 20101103
  Transmission Date: 20110411
  Serious: No
  Sender: FDA-Public Use
  Company Number: US-B.I. PHARMACEUTICALS,INC./RIDGEFIELD-2010-BP-12372BP

PATIENT
  Sex: Female

DRUGS (7)
  1. ZANTAC 150 [Suspect]
     Indication: DYSPEPSIA
     Route: 048
     Dates: start: 20080101, end: 20101101
  2. BACLOFEN [Concomitant]
     Indication: MUSCLE SPASMS
  3. DITROPAN [Concomitant]
     Indication: BLADDER SPASM
  4. OPANA [Concomitant]
     Indication: PAIN
  5. ESTRADIOL [Concomitant]
     Indication: HYSTERECTOMY
  6. LEVOTHYROXINE [Concomitant]
     Indication: HYPOTHYROIDISM
  7. INHALERS [Concomitant]
     Indication: ASTHMA

REACTIONS (2)
  - DRUG INEFFECTIVE [None]
  - DYSPHONIA [None]
